FAERS Safety Report 6334226-7 (Version None)
Quarter: 2009Q3

REPORT INFORMATION
  Report Type: 
  Country: None (occurrence: None)
  Receive Date: 20090829
  Receipt Date: 20090729
  Transmission Date: 20100115
  Serious: No
  Sender: FDA-Public Use
  Company Number: US-ABBOTT-09P-163-0588510-00

PATIENT
  Sex: Male
  Weight: 78.542 kg

DRUGS (4)
  1. SIMCOR [Suspect]
     Indication: BLOOD CHOLESTEROL INCREASED
     Dates: start: 20090101, end: 20090101
  2. SIMCOR [Suspect]
     Indication: BLOOD TRIGLYCERIDES INCREASED
     Dates: start: 20090101
  3. ASPIRIN [Concomitant]
     Indication: DRUG USE FOR UNKNOWN INDICATION
  4. PLAVIX [Concomitant]
     Indication: CORONARY ARTERIAL STENT INSERTION

REACTIONS (7)
  - BLISTER [None]
  - FLUSHING [None]
  - INSOMNIA [None]
  - IRRITABILITY [None]
  - PAIN [None]
  - PARAESTHESIA [None]
  - PRURITUS [None]
